FAERS Safety Report 15371924 (Version 1)
Quarter: 2018Q3

REPORT INFORMATION
  Report Type: Spontaneous
  Country: US (occurrence: US)
  Receive Date: 20180911
  Receipt Date: 20180911
  Transmission Date: 20181010
  Serious: Yes (Death, Hospitalization)
  Sender: FDA-Public Use
  Company Number: US-TEVA-2018-US-952627

PATIENT
  Age: 57 Year
  Sex: Female

DRUGS (1)
  1. OXYCODONE HYDROCHLORIDE. [Suspect]
     Active Substance: OXYCODONE HYDROCHLORIDE
     Dosage: IV INJECTION OF PULVERISED CRUSHED ORAL OXYCODONE
     Route: 042

REACTIONS (6)
  - Pulmonary embolism [Fatal]
  - Pulmonary hypertension [Fatal]
  - Drug abuse [Fatal]
  - Pulmonary granuloma [Fatal]
  - Right ventricular failure [Fatal]
  - Ventricular fibrillation [Fatal]
